FAERS Safety Report 9369657 (Version 1)
Quarter: 2013Q2

REPORT INFORMATION
  Report Type: Spontaneous
  Country: CN (occurrence: CN)
  Receive Date: 20130626
  Receipt Date: 20130626
  Transmission Date: 20140414
  Serious: No
  Sender: FDA-Public Use
  Company Number: CN-JNJFOC-20130613194

PATIENT
  Age: 52 Year
  Sex: Male

DRUGS (2)
  1. FENTANYL [Suspect]
     Indication: ABDOMINAL PAIN
     Route: 062
     Dates: start: 20120304, end: 20120304
  2. FENTANYL [Suspect]
     Indication: HEPATIC PAIN
     Route: 062
     Dates: start: 20120304, end: 20120304

REACTIONS (2)
  - Vomiting [Recovered/Resolved]
  - Inappropriate schedule of drug administration [Unknown]
